FAERS Safety Report 7863809-8 (Version None)
Quarter: 2011Q4

REPORT INFORMATION
  Report Type: 
  Country: None (occurrence: None)
  Receive Date: 20111028
  Receipt Date: 20111018
  Transmission Date: 20120403
  Serious: Yes (Hospitalization)
  Sender: FDA-Public Use
  Company Number: US-BIOGENIDEC-2011BI035365

PATIENT
  Age: 48 Year
  Sex: Male

DRUGS (8)
  1. AVONEX [Suspect]
     Indication: MULTIPLE SCLEROSIS
     Route: 030
     Dates: start: 20110807
  2. AMLODIPINE [Concomitant]
     Indication: HYPERTENSION
     Dates: start: 20090101, end: 20110915
  3. INSULIN [Concomitant]
     Indication: DIABETES MELLITUS
     Dates: start: 20110901, end: 20110901
  4. LISINOPRIL WITH HCTZ [Concomitant]
     Indication: HYPERTENSION
     Dates: start: 20040101, end: 20110915
  5. AVONEX [Suspect]
     Route: 030
     Dates: start: 20110807
  6. METFORMIN HCL [Concomitant]
     Indication: DIABETES MELLITUS
     Dates: start: 20110901
  7. METOPROLOL TARTRATE [Concomitant]
     Indication: HYPERTENSION
     Dates: start: 20090101
  8. JANUVIA [Concomitant]
     Indication: DIABETES MELLITUS
     Dates: end: 20110901

REACTIONS (10)
  - MUSCLE SPASMS [None]
  - THROMBOSIS [None]
  - BLOOD COUNT ABNORMAL [None]
  - RENAL FAILURE [None]
  - FEMORAL ARTERY ANEURYSM [None]
  - MYALGIA [None]
  - POOR PERIPHERAL CIRCULATION [None]
  - CENTRAL NERVOUS SYSTEM LESION [None]
  - INFECTION [None]
  - PROCEDURAL PAIN [None]
